FAERS Safety Report 12130367 (Version 2)
Quarter: 2016Q2

REPORT INFORMATION
  Report Type: Spontaneous
  Country: IT (occurrence: IT)
  Receive Date: 20160229
  Receipt Date: 20160414
  Transmission Date: 20160815
  Serious: Yes (Hospitalization, Other)
  Sender: FDA-Public Use
  Company Number: IT-BRISTOL-MYERS SQUIBB COMPANY-BMS-2016-011654

PATIENT
  Age: 89 Year
  Sex: Male

DRUGS (1)
  1. COUMADIN [Suspect]
     Active Substance: WARFARIN SODIUM
     Indication: PRODUCT USED FOR UNKNOWN INDICATION
     Route: 065

REACTIONS (5)
  - Syncope [Recovered/Resolved with Sequelae]
  - Anaemia [Recovered/Resolved with Sequelae]
  - Haematoma [Recovered/Resolved with Sequelae]
  - Packed red blood cell transfusion [Unknown]
  - International normalised ratio increased [Recovered/Resolved with Sequelae]

NARRATIVE: CASE EVENT DATE: 20160205
